FAERS Safety Report 17551773 (Version 1)
Quarter: 2020Q1

REPORT INFORMATION
  Report Type: Spontaneous
  Country: US (occurrence: US)
  Receive Date: 20200310
  Receipt Date: 20200310
  Transmission Date: 20200409
  Serious: No
  Sender: FDA-Public Use
  Company Number: None

PATIENT
  Age: 61 Year
  Sex: Female

DRUGS (1)
  1. CAPECITABINE TAB  150MG [Suspect]
     Active Substance: CAPECITABINE
     Route: 048
     Dates: start: 20200309

REACTIONS (3)
  - Extra dose administered [None]
  - Product use issue [None]
  - Wrong schedule [None]

NARRATIVE: CASE EVENT DATE: 20200310
